FAERS Safety Report 4684594-7 (Version None)
Quarter: 2005Q2

REPORT INFORMATION
  Report Type: 
  Country: None (occurrence: None)
  Receive Date: 20050603
  Receipt Date: 20050524
  Transmission Date: 20051028
  Serious: Yes (Other)
  Sender: FDA-Public Use
  Company Number: 2005079161

PATIENT
  Sex: Male

DRUGS (1)
  1. XALATAN [Suspect]
     Indication: ILL-DEFINED DISORDER
     Dosage: 2 DROP (1 DROP, 1 IN 1 D), OPHTHALMIC
     Route: 047

REACTIONS (1)
  - MYOCARDIAL INFARCTION [None]
